FAERS Safety Report 9499780 (Version 1)
Quarter: 2013Q3

REPORT INFORMATION
  Report Type: Spontaneous
  Country: US (occurrence: None)
  Receive Date: 20130904
  Receipt Date: 20130904
  Transmission Date: 20140515
  Serious: Yes (Death)
  Sender: FDA-Public Use
  Company Number: None

PATIENT
  Sex: Male

DRUGS (1)
  1. TAFINLAR [Suspect]
     Indication: MALIGNANT MELANOMA
     Dosage: TAFINLAR 75MG CAPSULES  150MG (2 CAPS) DAILY ORAL
     Route: 048
     Dates: start: 20130806

REACTIONS (1)
  - Death [None]
